FAERS Safety Report 8147740-9 (Version None)
Quarter: 2012Q1

REPORT INFORMATION
  Report Type: 
  Country: None (occurrence: None)
  Receive Date: 20120218
  Receipt Date: 20110310
  Transmission Date: 20120608
  Serious: No
  Sender: FDA-Public Use
  Company Number: US-ALLERGAN-1103462US

PATIENT
  Sex: Female

DRUGS (2)
  1. BOTOX COSMETIC [Suspect]
     Dosage: UNK UNITS, SINGLE
  2. BOTOX COSMETIC [Suspect]
     Indication: SKIN WRINKLING
     Dosage: UNK UNITS, SINGLE

REACTIONS (3)
  - THERAPEUTIC RESPONSE DECREASED [None]
  - EYE SWELLING [None]
  - EYELID PTOSIS [None]
